FAERS Safety Report 21100012 (Version 1)
Quarter: 2022Q3

REPORT INFORMATION
  Report Type: Spontaneous
  Country: JP (occurrence: JP)
  Receive Date: 20220719
  Receipt Date: 20220719
  Transmission Date: 20221027
  Serious: Yes (Other)
  Sender: FDA-Public Use
  Company Number: JP-NOVARTISPH-NVSJ2022JP094351

PATIENT
  Age: 50 Year
  Sex: Male

DRUGS (1)
  1. EPINEPHRINE\LIDOCAINE HYDROCHLORIDE [Suspect]
     Active Substance: EPINEPHRINE\LIDOCAINE HYDROCHLORIDE
     Indication: Nerve block
     Dosage: 4CC OF SOLUTION FOR INJECTION DILUTED 2-FOLD WITH SALINE
     Route: 065

REACTIONS (2)
  - Extremity necrosis [Unknown]
  - Contraindicated product administered [Unknown]
